FAERS Safety Report 15110509 (Version 1)
Quarter: 2018Q3

REPORT INFORMATION
  Report Type: Spontaneous
  Country: CN (occurrence: CN)
  Receive Date: 20180705
  Receipt Date: 20180705
  Transmission Date: 20181010
  Serious: Yes (Hospitalization)
  Sender: FDA-Public Use
  Company Number: PHHY2018CN036350

PATIENT
  Age: 56 Year
  Sex: Male
  Weight: 53 kg

DRUGS (1)
  1. TEGRETAL [Suspect]
     Active Substance: CARBAMAZEPINE
     Indication: TRIGEMINAL NEURALGIA
     Dosage: 0.1 G, BID
     Route: 048
     Dates: start: 20180422, end: 20180501

REACTIONS (1)
  - Pityriasis rubra pilaris [Recovering/Resolving]

NARRATIVE: CASE EVENT DATE: 20180429
